FAERS Safety Report 7849362-3 (Version None)
Quarter: 2011Q4

REPORT INFORMATION
  Report Type: 
  Country: None (occurrence: None)
  Receive Date: 20111021
  Receipt Date: 20111013
  Transmission Date: 20120403
  Serious: Yes (Other)
  Sender: FDA-Public Use
  Company Number: 2011-01187

PATIENT
  Sex: Female

DRUGS (4)
  1. DESOGESTREL/ETHINYL ESTRADIOL (APRI)(TABLETS) [Concomitant]
  2. METFORMIN(TABLETS) [Concomitant]
  3. SUPRAX [Suspect]
     Indication: UPPER RESPIRATORY TRACT INFECTION
     Dosage: 400 MG (400 MG, 1 IN 1 D),PER ORAL
     Route: 048
     Dates: start: 20110906, end: 20110920
  4. ARMOUR THYROID (TABLETS) [Concomitant]

REACTIONS (1)
  - FOOD POISONING [None]
